FAERS Safety Report 9933939 (Version 2)
Quarter: 2014Q1

REPORT INFORMATION
  Report Type: Report from Study
  Country: US (occurrence: US)
  Receive Date: 20140228
  Receipt Date: 20140228
  Transmission Date: 20141002
  Serious: No
  Sender: FDA-Public Use
  Company Number: US-ABBVIE-13P-163-1176163-00

PATIENT
  Sex: Male
  Weight: 127.12 kg

DRUGS (3)
  1. ANDROGEL [Suspect]
     Indication: PRODUCT USED FOR UNKNOWN INDICATION
     Dosage: 2 PUMPS DAILY
     Route: 061
     Dates: start: 201302, end: 201308
  2. ANDROGEL [Suspect]
     Dosage: 6 PUMPS DAILY
     Route: 061
     Dates: start: 201308
  3. HYDROCODONE [Concomitant]
     Indication: MUSCULOSKELETAL PAIN

REACTIONS (4)
  - Incorrect dose administered [Not Recovered/Not Resolved]
  - Weight increased [Not Recovered/Not Resolved]
  - Hot flush [Not Recovered/Not Resolved]
  - Blood testosterone decreased [Not Recovered/Not Resolved]
